FAERS Safety Report 19399459 (Version 12)
Quarter: 2025Q1

REPORT INFORMATION
  Report Type: Spontaneous
  Country: US (occurrence: US)
  Receive Date: 20210610
  Receipt Date: 20250321
  Transmission Date: 20250409
  Serious: No
  Sender: PFIZER
  Company Number: US-PFIZER INC-2021641607

PATIENT
  Age: 72 Year
  Sex: Female

DRUGS (1)
  1. XELJANZ XR [Suspect]
     Active Substance: TOFACITINIB CITRATE
     Dosage: 11 MG, 1X/DAY
     Dates: start: 20240201

REACTIONS (8)
  - Arthropathy [Unknown]
  - Gait disturbance [Unknown]
  - Anaemia [Unknown]
  - Psoriasis [Not Recovered/Not Resolved]
  - Mobility decreased [Unknown]
  - Gait inability [Not Recovered/Not Resolved]
  - Arthralgia [Unknown]
  - Infection [Unknown]
